FAERS Safety Report 4752502-6 (Version None)
Quarter: 2005Q3

REPORT INFORMATION
  Report Type: 
  Country: None (occurrence: None)
  Receive Date: 20050825
  Receipt Date: 20040419
  Transmission Date: 20060218
  Serious: Yes (Hospitalization)
  Sender: FDA-Public Use
  Company Number: FR-ROCHE-364763

PATIENT
  Age: 33 Year
  Sex: Male

DRUGS (2)
  1. ROACCUTANE [Suspect]
     Indication: DRUG USE FOR UNKNOWN INDICATION
     Dosage: DOSAGE REGIMEN REPORTED AS: 1 CAPSULE A.
     Route: 048
     Dates: start: 20031001, end: 20040115
  2. ROACCUTANE [Suspect]
     Dosage: DOSAGE INCREASED.
     Route: 048
     Dates: start: 20040115, end: 20040212

REACTIONS (5)
  - DEEP VEIN THROMBOSIS [None]
  - INFLAMMATION [None]
  - PHLEBITIS [None]
  - PLEURAL EFFUSION [None]
  - PULMONARY EMBOLISM [None]
